FAERS Safety Report 18474230 (Version 1)
Quarter: 2020Q4

REPORT INFORMATION
  Report Type: Spontaneous
  Country: US (occurrence: US)
  Receive Date: 20201106
  Receipt Date: 20201106
  Transmission Date: 20210114
  Serious: No
  Sender: FDA-Public Use
  Company Number: US-PFIZER INC-2020428568

PATIENT
  Age: 60 Year
  Sex: Female

DRUGS (3)
  1. IBRANCE [Suspect]
     Active Substance: PALBOCICLIB
     Indication: BREAST CANCER FEMALE
     Dosage: 1 DF, CYCLIC (1 TABLET ONCE DAILY ON DAYS 1 TO 21, FOLLOWED BY 7 DAYS OF REST, REPEATED EVERY 28 DAY
     Route: 048
     Dates: start: 202007
  2. LETROZOLE. [Suspect]
     Active Substance: LETROZOLE
     Dosage: UNK
  3. XGEVA [Suspect]
     Active Substance: DENOSUMAB
     Dosage: UNK

REACTIONS (1)
  - Gingival recession [Unknown]
